FAERS Safety Report 18474827 (Version 5)
Quarter: 2020Q4

REPORT INFORMATION
  Report Type: Spontaneous
  Country: CZ (occurrence: CZ)
  Receive Date: 20201106
  Receipt Date: 20201209
  Transmission Date: 20210114
  Serious: Yes (Other)
  Sender: FDA-Public Use
  Company Number: NVSC2020CZ274983

PATIENT
  Age: 51 Year
  Sex: Male

DRUGS (5)
  1. PERINDOPRIL [Suspect]
     Active Substance: PERINDOPRIL
     Indication: HYPERTENSION
     Dosage: 5 MG, QD
     Route: 048
  2. BETAXOLOL. [Suspect]
     Active Substance: BETAXOLOL
     Dosage: 10 MILLIGRAM, QD
     Route: 065
  3. BETAXOLOL. [Suspect]
     Active Substance: BETAXOLOL
     Indication: HYPERTENSION
     Dosage: 20 MILLIGRAM, QD
     Route: 065
  4. PERINDOPRIL/INDAPAMIDE [Suspect]
     Active Substance: INDAPAMIDE\PERINDOPRIL
     Indication: PRODUCT USED FOR UNKNOWN INDICATION
     Dosage: UNK
     Route: 065
  5. AMLODIPINE [Suspect]
     Active Substance: AMLODIPINE BESYLATE
     Indication: HYPERTENSION
     Dosage: 5 MG, QD
     Route: 048

REACTIONS (11)
  - Erectile dysfunction [Recovered/Resolved]
  - Drug intolerance [Unknown]
  - Oedema peripheral [Recovered/Resolved]
  - Drug ineffective [Unknown]
  - Fatigue [Recovered/Resolved]
  - Dizziness [Recovered/Resolved]
  - Decreased activity [Unknown]
  - Somnolence [Recovered/Resolved]
  - Bradycardia [Recovered/Resolved]
  - Peripheral swelling [Recovered/Resolved]
  - Swelling [Recovered/Resolved]
